FAERS Safety Report 5270607-0 (Version None)
Quarter: 2007Q1

REPORT INFORMATION
  Report Type: 
  Country: None (occurrence: None)
  Receive Date: 20070315
  Receipt Date: 20070308
  Transmission Date: 20070707
  Serious: Yes (Death, Hospitalization, Other)
  Sender: FDA-Public Use
  Company Number: 163-21880-07020969

PATIENT
  Age: 66 Year
  Sex: Male

DRUGS (4)
  1. REVLIMID [Suspect]
     Indication: IRON METABOLISM DISORDER
     Dosage: SEE IMAGE
     Route: 048
     Dates: start: 20070122, end: 20070213
  2. REVLIMID [Suspect]
     Indication: MYELODYSPLASTIC SYNDROME
     Dosage: SEE IMAGE
     Route: 048
     Dates: start: 20070122, end: 20070213
  3. REVLIMID [Suspect]
     Indication: IRON METABOLISM DISORDER
     Dosage: SEE IMAGE
     Route: 048
     Dates: end: 20070307
  4. REVLIMID [Suspect]
     Indication: MYELODYSPLASTIC SYNDROME
     Dosage: SEE IMAGE
     Route: 048
     Dates: end: 20070307

REACTIONS (2)
  - EPISTAXIS [None]
  - RENAL IMPAIRMENT [None]
